FAERS Safety Report 4634352-4 (Version None)
Quarter: 2005Q2

REPORT INFORMATION
  Report Type: 
  Country: None (occurrence: None)
  Receive Date: 20050411
  Receipt Date: 20050329
  Transmission Date: 20051028
  Serious: Yes (Death)
  Sender: FDA-Public Use
  Company Number: 2005054455

PATIENT
  Age: 43 Year
  Sex: Male

DRUGS (1)
  1. BEXTRA [Suspect]
     Indication: MUSCULOSKELETAL DISORDER
     Dosage: (20 MG, UNKNOWN), ORAL
     Route: 048

REACTIONS (1)
  - MYOCARDIAL INFARCTION [None]
